FAERS Safety Report 18512302 (Version 4)
Quarter: 2021Q1

REPORT INFORMATION
  Report Type: Spontaneous
  Country: US (occurrence: US)
  Receive Date: 20201117
  Receipt Date: 20210107
  Transmission Date: 20210419
  Serious: Yes (Death, Other)
  Sender: FDA-Public Use
  Company Number: US-PFIZER INC-2020453760

PATIENT
  Age: 92 Year
  Sex: Female
  Weight: 49.9 kg

DRUGS (2)
  1. IBRANCE [Suspect]
     Active Substance: PALBOCICLIB
     Indication: BREAST CANCER METASTATIC
     Dosage: 75 MG, CYCLIC (DAILY FOR 21 DAYS ON AND 7 DAYS OFF)
     Route: 048
     Dates: start: 20201030, end: 20201113
  2. FASLODEX [Concomitant]
     Active Substance: FULVESTRANT
     Indication: BREAST CANCER METASTATIC
     Dosage: UNK (1/2 DOSE ADMINISTERED IN LEFT BUTTOCK AND OTHER 1/2 IN RIGHT BUTTOCK CHEEK )
     Dates: start: 20201030

REACTIONS (9)
  - Fatigue [Recovering/Resolving]
  - Atrophy [Not Recovered/Not Resolved]
  - Oxygen saturation decreased [Recovering/Resolving]
  - Altered state of consciousness [Unknown]
  - Neoplasm progression [Not Recovered/Not Resolved]
  - Pneumonia [Recovering/Resolving]
  - Productive cough [Unknown]
  - Lethargy [Recovering/Resolving]
  - Death [Fatal]

NARRATIVE: CASE EVENT DATE: 20201102
